FAERS Safety Report 8765214 (Version 2)
Quarter: 2012Q4

REPORT INFORMATION
  Report Type: 
  Country: US (occurrence: US)
  Receive Date: 20120831
  Receipt Date: 20120927
  Transmission Date: 20130627
  Serious: No
  Sender: FDA-Public Use
  Company Number: US-PFIZER INC-2012212146

PATIENT
  Age: 65 Year
  Sex: Male

DRUGS (1)
  1. VIAGRA [Suspect]
     Dosage: 100 mg, 1/2 or 1 tab as needed
     Route: 048
     Dates: start: 2008, end: 201208

REACTIONS (1)
  - Drug ineffective [Unknown]
